FAERS Safety Report 5116766-1 (Version None)
Quarter: 2006Q3

REPORT INFORMATION
  Report Type: 
  Country: None (occurrence: None)
  Receive Date: 20060928
  Receipt Date: 20060918
  Transmission Date: 20061208
  Serious: Yes (Hospitalization)
  Sender: FDA-Public Use
  Company Number: CH-BRISTOL-MYERS SQUIBB COMPANY-13513916

PATIENT
  Age: 62 Year
  Sex: Female

DRUGS (8)
  1. GLUCOPHAGE [Suspect]
     Indication: DIABETES MELLITUS
     Route: 048
     Dates: end: 20060314
  2. APROVEL [Suspect]
     Route: 048
     Dates: end: 20060314
  3. VOLTAREN [Suspect]
     Indication: BACK PAIN
     Route: 048
     Dates: start: 20060301, end: 20060314
  4. ASPIRIN [Suspect]
     Route: 048
  5. DIPIPERON [Concomitant]
     Route: 048
  6. HALDOL SOLUTAB [Concomitant]
     Route: 048
  7. DIAMICRON [Concomitant]
     Route: 048
  8. LORAZEPAM [Concomitant]
     Route: 048

REACTIONS (4)
  - ABDOMINAL PAIN [None]
  - HAEMODIALYSIS [None]
  - LACTIC ACIDOSIS [None]
  - RENAL FAILURE ACUTE [None]
